FAERS Safety Report 17994797 (Version 2)
Quarter: 2020Q3

REPORT INFORMATION
  Report Type: Spontaneous
  Country: CA (occurrence: CA)
  Receive Date: 20200708
  Receipt Date: 20200715
  Transmission Date: 20201103
  Serious: Yes (Life-Threatening, Hospitalization)
  Sender: FDA-Public Use
  Company Number: CA-TEVA-2020-CA-1797220

PATIENT
  Age: 12 Year
  Sex: Female
  Weight: 52 kg

DRUGS (33)
  1. ETOPOSIDE. [Suspect]
     Active Substance: ETOPOSIDE
     Indication: ACUTE LYMPHOCYTIC LEUKAEMIA
     Route: 042
  2. CEFTAZIDIME. [Concomitant]
     Active Substance: CEFTAZIDIME
  3. CICLOSPORIN [Concomitant]
     Active Substance: CYCLOSPORINE
  4. DEXAMETHASONE. [Concomitant]
     Active Substance: DEXAMETHASONE
  5. MOMETASONE FUROATE. [Concomitant]
     Active Substance: MOMETASONE FUROATE
  6. EPINEPHRINE. [Concomitant]
     Active Substance: EPINEPHRINE
  7. METHYLPREDNISOLONE NOS [Concomitant]
     Active Substance: METHYLPREDNISOLONE
  8. METOCLOPRAMIDE. [Concomitant]
     Active Substance: METOCLOPRAMIDE
  9. MAGNESIUM [Concomitant]
     Active Substance: MAGNESIUM
  10. ONDANSETRON [Concomitant]
     Active Substance: ONDANSETRON
  11. PENTAMIDINE ISETHIONATE INJ 300MG/VIAL BP [Concomitant]
  12. ACETAMINOPHEN. [Concomitant]
     Active Substance: ACETAMINOPHEN
  13. GABAPENTIN. [Concomitant]
     Active Substance: GABAPENTIN
  14. HEPARIN CALCIUM [Concomitant]
     Active Substance: HEPARIN CALCIUM
  15. NIFEDIPINE. [Concomitant]
     Active Substance: NIFEDIPINE
  16. RANITIDINE. [Concomitant]
     Active Substance: RANITIDINE
  17. URSODEOXYCHOLIC ACID [Concomitant]
     Active Substance: URSODIOL
  18. ACYCLOVIR. [Concomitant]
     Active Substance: ACYCLOVIR
  19. CALCIUM + VITAMIN D [Concomitant]
     Active Substance: CALCIUM\VITAMIN D
  20. DIMENHYDRINATE. [Concomitant]
     Active Substance: DIMENHYDRINATE
  21. FLUCONAZOLE. [Concomitant]
     Active Substance: FLUCONAZOLE
  22. HYDROCORTISONE. [Concomitant]
     Active Substance: HYDROCORTISONE
  23. MORPHINE [Concomitant]
     Active Substance: MORPHINE
  24. NYSTATIN. [Concomitant]
     Active Substance: NYSTATIN
  25. POLYETHYLENE GLYCOL [Concomitant]
     Active Substance: POLYETHYLENE GLYCOLS
  26. METHOTREXATE. [Suspect]
     Active Substance: METHOTREXATE
     Indication: ACUTE LYMPHOCYTIC LEUKAEMIA
     Route: 042
  27. AMLODIPINE [Concomitant]
     Active Substance: AMLODIPINE BESYLATE
  28. CHLORHEXIDINE [Concomitant]
     Active Substance: CHLORHEXIDINE
  29. DIPHENHYDRAMINE. [Concomitant]
     Active Substance: DIPHENHYDRAMINE
  30. FUROSEMIDE. [Concomitant]
     Active Substance: FUROSEMIDE
  31. LEUCOVORIN. [Concomitant]
     Active Substance: LEUCOVORIN
  32. MELATONIN [Concomitant]
     Active Substance: MELATONIN
  33. ANTI?THYMOCYTE GLOBULIN (RABBIT) NOS [Concomitant]
     Active Substance: LAPINE T-LYMPHOCYTE IMMUNE GLOBULIN

REACTIONS (3)
  - Aplastic anaemia [Recovered/Resolved]
  - Transfusion [Recovered/Resolved]
  - Febrile neutropenia [Recovered/Resolved]
